FAERS Safety Report 6464562-5 (Version None)
Quarter: 2009Q4

REPORT INFORMATION
  Report Type: 
  Country: None (occurrence: None)
  Receive Date: 20091201
  Receipt Date: 20091119
  Transmission Date: 20100525
  Serious: Yes (Hospitalization, Other)
  Sender: FDA-Public Use
  Company Number: US-PFIZER INC-2009301224

PATIENT
  Age: 35 Year
  Sex: Female
  Weight: 49.887 kg

DRUGS (4)
  1. BACITRACIN AND BACITRACIN ZINC [Suspect]
     Indication: BREAST OPERATION
     Dates: start: 20091113, end: 20091113
  2. DEPO-MEDROL [Suspect]
     Indication: RASH GENERALISED
     Dosage: UNK
     Route: 042
     Dates: start: 20091101
  3. AUGMENTIN [Concomitant]
     Dosage: 500 MG, 1X/DAY
     Route: 048
  4. PERCOCET [Concomitant]
     Indication: PAIN
     Dosage: UNK
     Route: 048

REACTIONS (2)
  - RASH [None]
  - RASH GENERALISED [None]
